FAERS Safety Report 5477831-2 (Version None)
Quarter: 2007Q4

REPORT INFORMATION
  Report Type: 
  Country: None (occurrence: None)
  Receive Date: 20071004
  Receipt Date: 20071004
  Transmission Date: 20080405
  Serious: Yes (Hospitalization)
  Sender: FDA-Public Use
  Company Number: FR-SANOFI-SYNTHELABO-F01200701179

PATIENT
  Sex: Female

DRUGS (4)
  1. FOLINIC ACID [Suspect]
     Dosage: UNK
     Route: 042
     Dates: start: 20040315, end: 20040315
  2. FLUOROURACIL [Suspect]
     Route: 042
     Dates: start: 20040315, end: 20040315
  3. CAMPO [Suspect]
     Route: 042
     Dates: start: 20040315, end: 20040315
  4. ELOXATIN [Suspect]
     Indication: PERITONEAL CARCINOMA
     Route: 033
     Dates: start: 20040315, end: 20040315

REACTIONS (2)
  - ILEORECTAL FISTULA [None]
  - PERITONITIS BACTERIAL [None]
